FAERS Safety Report 17163231 (Version 1)
Quarter: 2019Q4

REPORT INFORMATION
  Report Type: Spontaneous
  Country: IL (occurrence: IL)
  Receive Date: 20191217
  Receipt Date: 20191217
  Transmission Date: 20200122
  Serious: Yes (Other)
  Sender: FDA-Public Use
  Company Number: IL-TEVA-2019-IL-1154145

PATIENT
  Age: 72 Year
  Sex: Male

DRUGS (1)
  1. RESPRIM [Suspect]
     Active Substance: SULFAMETHOXAZOLE\TRIMETHOPRIM
     Route: 065

REACTIONS (2)
  - Haemoglobin decreased [Unknown]
  - White blood cell count decreased [Unknown]
